FAERS Safety Report 15900546 (Version 1)
Quarter: 2019Q1

REPORT INFORMATION
  Report Type: Spontaneous
  Country: US (occurrence: US)
  Receive Date: 20190131
  Receipt Date: 20190131
  Transmission Date: 20190417
  Serious: Yes (Life-Threatening, Other)
  Sender: FDA-Public Use
  Company Number: None

PATIENT
  Age: 70 Year
  Sex: Female
  Weight: 75.3 kg

DRUGS (1)
  1. DOBUTAMINE HYDROCHLORIDE. [Suspect]
     Active Substance: DOBUTAMINE HYDROCHLORIDE
     Indication: STRESS ECHOCARDIOGRAM
     Dosage: ?          OTHER FREQUENCY:OVER 3-5 MINUTES;?
     Route: 041

REACTIONS (6)
  - Blood pressure increased [None]
  - Hypoaesthesia oral [None]
  - Therapy non-responder [None]
  - Headache [None]
  - Paraesthesia oral [None]
  - Infusion related reaction [None]
